FAERS Safety Report 6633174-2 (Version None)
Quarter: 2010Q1

REPORT INFORMATION
  Report Type: 
  Country: None (occurrence: None)
  Receive Date: 20100310
  Receipt Date: 20100223
  Transmission Date: 20100710
  Serious: Yes (Hospitalization)
  Sender: FDA-Public Use
  Company Number: A-NJ2008-21509

PATIENT
  Age: 40 Year
  Sex: Female

DRUGS (7)
  1. VENTAVIS [Suspect]
     Indication: PULMONARY ARTERIAL HYPERTENSION
     Dosage: 5 UG, 6XDAY, RESPIRATORY; 2.5 UG, SINGLE, RESPIRATORY
     Route: 055
     Dates: start: 20080728, end: 20080728
  2. VENTAVIS [Suspect]
     Indication: PULMONARY ARTERIAL HYPERTENSION
     Dosage: 5 UG, 6XDAY, RESPIRATORY; 2.5 UG, SINGLE, RESPIRATORY
     Route: 055
     Dates: start: 20080728
  3. REVATIO [Concomitant]
  4. PREDNISONE [Concomitant]
  5. WARFARIN SODIUM [Concomitant]
  6. OXYGEN (OXYGEN) [Concomitant]
  7. DIURETICS [Concomitant]

REACTIONS (7)
  - ANXIETY [None]
  - BLOOD ALKALINE PHOSPHATASE INCREASED [None]
  - DIZZINESS [None]
  - FEELING JITTERY [None]
  - PALPITATIONS [None]
  - SYNCOPE [None]
  - TACHYCARDIA [None]
